FAERS Safety Report 14911817 (Version 2)
Quarter: 2018Q2

REPORT INFORMATION
  Report Type: Spontaneous
  Country: ES (occurrence: ES)
  Receive Date: 20180518
  Receipt Date: 20180528
  Transmission Date: 20180711
  Serious: Yes (Other)
  Sender: FDA-Public Use
  Company Number: ES-AMGEN-ESPSP2018064093

PATIENT
  Age: 84 Year
  Sex: Female
  Weight: 53 kg

DRUGS (15)
  1. FOLIC ACID. [Concomitant]
     Active Substance: FOLIC ACID
     Dosage: 5 MG, QD
     Route: 048
  2. ERYTHROPOIETIN [Concomitant]
     Active Substance: ERYTHROPOIETIN
     Dosage: 5000 IU, (INTERNATIONAL UNITS/WEEK IN 3 INTRAVENOUSLY (INTRAVENOUS) DOSES (2000-1000-2000)
     Route: 042
  3. IRON SUCROSE [Concomitant]
     Active Substance: IRON SUCROSE
     Dosage: 100 MG, EVERY 15 DAYS.
     Route: 042
  4. CHOLECALCIFEROL [Concomitant]
     Active Substance: CHOLECALCIFEROL
     Dosage: 300 IU, QD
  5. MIMPARA [Suspect]
     Active Substance: CINACALCET HYDROCHLORIDE
     Dosage: UNK, QOD
     Route: 065
     Dates: start: 2013
  6. ATORVASTATIN [Concomitant]
     Active Substance: ATORVASTATIN
     Dosage: 10 MG, QD
     Route: 048
  7. ARANESP [Concomitant]
     Active Substance: DARBEPOETIN ALFA
     Indication: PRODUCT USED FOR UNKNOWN INDICATION
     Dosage: 60 MUG, QWK
     Route: 065
  8. CLOPIDOGREL [Concomitant]
     Active Substance: CLOPIDOGREL BISULFATE
     Dosage: 75 MG, QD
     Route: 048
  9. MIMPARA [Suspect]
     Active Substance: CINACALCET HYDROCHLORIDE
     Indication: HYPERPARATHYROIDISM SECONDARY
     Dosage: 30 MG, QD
     Route: 065
     Dates: start: 201101
  10. PARSABIV [Suspect]
     Active Substance: ETELCALCETIDE HYDROCHLORIDE
     Indication: HYPERPARATHYROIDISM SECONDARY
     Dosage: 2.5 MG, UNK
     Route: 065
     Dates: start: 20171212
  11. HYDROXOCOBALAMIN W/PYRIDOXINE/THIAMINE [Concomitant]
     Dosage: 1 MG+250 MG+250MG
     Route: 048
  12. LANTHANUM CARBONATE. [Concomitant]
     Active Substance: LANTHANUM CARBONATE
     Indication: HYPERPARATHYROIDISM SECONDARY
     Dosage: 1800 MG, DISTRIBUTED IN LUNCH AND DINNER
     Dates: start: 201011
  13. PARICALCITOL. [Concomitant]
     Active Substance: PARICALCITOL
     Indication: HYPERPARATHYROIDISM SECONDARY
     Dosage: 6 MUG, QWK
     Route: 042
     Dates: start: 201011
  14. LEVETIRACETAM. [Concomitant]
     Active Substance: LEVETIRACETAM
     Dosage: 1000 MG, QD
     Route: 048
  15. RANITIDINE. [Concomitant]
     Active Substance: RANITIDINE
     Dosage: 150 MG, QD
     Route: 048

REACTIONS (9)
  - Asthenia [Unknown]
  - Fall [Unknown]
  - Parathyroid tumour benign [Unknown]
  - Weight decreased [Unknown]
  - Vomiting [Unknown]
  - Tibia fracture [Recovered/Resolved]
  - Muscular weakness [Recovering/Resolving]
  - Bone pain [Unknown]
  - Underdose [Unknown]

NARRATIVE: CASE EVENT DATE: 2011
